FAERS Safety Report 9012441 (Version 1)
Quarter: 2013Q1

REPORT INFORMATION
  Report Type: Spontaneous
  Country: BR (occurrence: BR)
  Receive Date: 20130114
  Receipt Date: 20130114
  Transmission Date: 20140127
  Serious: Yes (Other)
  Sender: FDA-Public Use
  Company Number: BR-PFIZER INC-2013014327

PATIENT
  Age: 47 Year
  Sex: Female
  Weight: 100 kg

DRUGS (2)
  1. LYRICA [Suspect]
     Dosage: 75 MG (ONE CAPSULE), EVERY 12 HOURS
     Route: 048
     Dates: start: 201212
  2. TRAMAL [Concomitant]
     Indication: BACK DISORDER
     Dosage: ONE TABLET, EVERY 8 HOURS
     Dates: start: 201212

REACTIONS (2)
  - Dislocation of vertebra [Unknown]
  - Spinal cord compression [Unknown]
